FAERS Safety Report 4761185-0 (Version None)
Quarter: 2005Q3

REPORT INFORMATION
  Report Type: 
  Country: None (occurrence: None)
  Receive Date: 20050901
  Receipt Date: 20050518
  Transmission Date: 20060218
  Serious: Yes (Death)
  Sender: FDA-Public Use
  Company Number: 2005FR-00236

PATIENT
  Sex: Male

DRUGS (3)
  1. IBUPROFEN [Suspect]
     Indication: PATENT DUCTUS ARTERIOSUS
     Dosage: 10 MG;KG, INTRAVENOS
     Route: 042
     Dates: start: 20050209, end: 20050209
  2. CAFFEINE CITRATE [Concomitant]
  3. RANITIDINE [Concomitant]

REACTIONS (12)
  - ABDOMINAL DISTENSION [None]
  - BLOOD CULTURE POSITIVE [None]
  - BODY TEMPERATURE INCREASED [None]
  - CATHETER RELATED INFECTION [None]
  - CLOSTRIDIUM COLITIS [None]
  - DEATH NEONATAL [None]
  - INTESTINAL PERFORATION [None]
  - NECROTISING ENTEROCOLITIS NEONATAL [None]
  - NEONATAL DISORDER [None]
  - NEONATAL RESPIRATORY ACIDOSIS [None]
  - SKIN DISCOLOURATION [None]
  - STAPHYLOCOCCAL INFECTION [None]
